FAERS Safety Report 11120566 (Version 1)
Quarter: 2015Q2

REPORT INFORMATION
  Report Type: Spontaneous
  Country: FR (occurrence: FR)
  Receive Date: 20150519
  Receipt Date: 20150519
  Transmission Date: 20150821
  Serious: Yes (Other)
  Sender: FDA-Public Use
  Company Number: PHHY2015FR056822

PATIENT
  Age: 11 Year
  Sex: Male

DRUGS (1)
  1. GRISEOFULVIN. [Suspect]
     Active Substance: GRISEOFULVIN
     Indication: TRICHOPHYTOSIS
     Dosage: 25 MG/KG, QD
     Route: 065

REACTIONS (6)
  - Pyrexia [Recovered/Resolved]
  - Acute generalised exanthematous pustulosis [Recovered/Resolved]
  - Lymphadenopathy [Recovered/Resolved]
  - Chondritis [Recovered/Resolved]
  - General physical health deterioration [Recovered/Resolved]
  - Rash pustular [Recovered/Resolved]
